FAERS Safety Report 22262728 (Version 5)
Quarter: 2023Q2

REPORT INFORMATION
  Report Type: Spontaneous
  Country: TR (occurrence: TR)
  Receive Date: 20230428
  Receipt Date: 20230605
  Transmission Date: 20230722
  Serious: Yes (Other)
  Sender: FDA-Public Use
  Company Number: TR-PFIZER INC-PV202300066198

PATIENT
  Age: 52 Year
  Sex: Female

DRUGS (2)
  1. ENBREL [Suspect]
     Active Substance: ETANERCEPT
     Indication: Psoriatic arthropathy
     Dosage: 50 MG, WEEKLY
     Route: 065
  2. ATACAND [Concomitant]
     Active Substance: CANDESARTAN CILEXETIL
     Indication: Blood pressure abnormal
     Dosage: UNK

REACTIONS (4)
  - Diabetes mellitus [Unknown]
  - Sleep apnoea syndrome [Unknown]
  - Erythema [Recovered/Resolved]
  - Wrong technique in device usage process [Unknown]
